FAERS Safety Report 19948449 (Version 1)
Quarter: 2021Q4

REPORT INFORMATION
  Report Type: Spontaneous
  Country: US (occurrence: US)
  Receive Date: 20211013
  Receipt Date: 20211013
  Transmission Date: 20220303
  Serious: No
  Sender: FDA-Public Use
  Company Number: US-NEUROCRINE BIOSCIENCES INC.-2021NBI05622

PATIENT

DRUGS (2)
  1. OPICAPONE [Suspect]
     Active Substance: OPICAPONE
     Indication: Product used for unknown indication
     Dosage: 50 MILLIGRAM
     Route: 048
  2. OPICAPONE [Suspect]
     Active Substance: OPICAPONE
     Dosage: 25 MILLIGRAM
     Route: 048

REACTIONS (1)
  - Orthostatic hypotension [Not Recovered/Not Resolved]
